FAERS Safety Report 8069405-4 (Version None)
Quarter: 2012Q1

REPORT INFORMATION
  Report Type: 
  Country: None (occurrence: None)
  Receive Date: 20120119
  Receipt Date: 20120109
  Transmission Date: 20120608
  Serious: Yes (Death)
  Sender: FDA-Public Use
  Company Number: JPI-P-000622

PATIENT
  Age: 57 Year
  Sex: Female

DRUGS (18)
  1. NEXIUM [Concomitant]
  2. MARINOL [Concomitant]
  3. FOSAMAX [Concomitant]
  4. ACETAMINOPHEN [Concomitant]
  5. MAGNESIUM [Concomitant]
  6. ABILIFY [Concomitant]
  7. KLONOPIN [Concomitant]
  8. SYNTHROID [Concomitant]
  9. ZANTAC [Concomitant]
  10. DEPAKOTE [Concomitant]
  11. CALCIUM [Concomitant]
  12. CELEXA [Concomitant]
  13. XYREM [Suspect]
     Indication: INSOMNIA
     Dosage: 6 GM (6 GM, 1 IN 1 D), ORAL
     Route: 048
  14. REMERON [Concomitant]
  15. GLUCOSE CHONDROITIN [Concomitant]
  16. EVISTA [Concomitant]
  17. ACTOS [Concomitant]
  18. NIFEREX [Concomitant]

REACTIONS (3)
  - TREATMENT NONCOMPLIANCE [None]
  - HYPERKALAEMIA [None]
  - RENAL FAILURE [None]
